FAERS Safety Report 9761560 (Version 2)
Quarter: 2013Q4

REPORT INFORMATION
  Report Type: Spontaneous
  Country: US (occurrence: US)
  Receive Date: 20131216
  Receipt Date: 20131216
  Transmission Date: 20140711
  Serious: Yes (Other)
  Sender: FDA-Public Use
  Company Number: PHHY2013US114365

PATIENT
  Sex: Female

DRUGS (4)
  1. BACLOFEN INTRATHECAL [Suspect]
     Indication: MUSCLE SPASTICITY
     Dosage: 998.9 UG, PER DAY
     Route: 037
     Dates: start: 200508
  2. BACLOFEN INTRATHECAL [Suspect]
     Dosage: 1500 UG, PER DAY
     Route: 037
  3. BACLOFEN INTRATHECAL [Suspect]
     Dosage: SIGNIFICANTLY LOWER RATE OF BACLOFEN
     Route: 037
  4. FLUCONAZOLE [Suspect]
     Dosage: 50 MG, QD

REACTIONS (6)
  - Procedural pain [Recovering/Resolving]
  - Implant site pain [Recovering/Resolving]
  - Muscle spasms [Recovering/Resolving]
  - Cerebrospinal fluid leakage [Recovering/Resolving]
  - Muscle spasticity [Recovering/Resolving]
  - No therapeutic response [Recovering/Resolving]
